FAERS Safety Report 21830889 (Version 5)
Quarter: 2023Q1

REPORT INFORMATION
  Report Type: Spontaneous
  Country: US (occurrence: US)
  Receive Date: 20230106
  Receipt Date: 20230330
  Transmission Date: 20230417
  Serious: No
  Sender: FDA-Public Use
  Company Number: US-BRISTOL-MYERS SQUIBB COMPANY-2023-002143

PATIENT
  Age: 68 Year
  Sex: Female

DRUGS (1)
  1. ORENCIA [Suspect]
     Active Substance: ABATACEPT
     Indication: Rheumatoid arthritis
     Route: 058
     Dates: start: 202211

REACTIONS (6)
  - Headache [Unknown]
  - Injection site bruising [Unknown]
  - Injection site erythema [Unknown]
  - Dizziness [Unknown]
  - Injection site pain [Unknown]
  - Skin disorder [Unknown]
